FAERS Safety Report 5530832-8 (Version None)
Quarter: 2007Q4

REPORT INFORMATION
  Report Type: 
  Country: None (occurrence: None)
  Receive Date: 20071130
  Receipt Date: 20071121
  Transmission Date: 20080405
  Serious: Yes (Hospitalization)
  Sender: FDA-Public Use
  Company Number: US-AMGEN-STX217567

PATIENT
  Sex: Male
  Weight: 70 kg

DRUGS (4)
  1. ENBREL [Suspect]
     Indication: ANKYLOSING SPONDYLITIS
     Route: 058
     Dates: start: 20050801
  2. DIOVAN [Concomitant]
     Route: 065
  3. NORVASC [Concomitant]
     Route: 065
  4. PREVACID [Concomitant]
     Route: 065

REACTIONS (5)
  - ARTHRITIS [None]
  - BAND NEUTROPHIL COUNT INCREASED [None]
  - LEUKOCYTOSIS [None]
  - TRANSITIONAL CELL CARCINOMA [None]
  - VIRAL INFECTION [None]
